FAERS Safety Report 14408831 (Version 3)
Quarter: 2018Q1

REPORT INFORMATION
  Report Type: Report from Study
  Country: None (occurrence: US)
  Receive Date: 20180119
  Receipt Date: 20180320
  Transmission Date: 20180509
  Serious: Yes (Hospitalization)
  Sender: FDA-Public Use
  Company Number: US-ABBVIE-18K-163-2226398-00

PATIENT
  Age: 47 Year
  Sex: Female
  Weight: 77.18 kg

DRUGS (5)
  1. ZOLOFT [Concomitant]
     Active Substance: SERTRALINE HYDROCHLORIDE
     Indication: ANXIETY
  2. FOSAMAX [Concomitant]
     Active Substance: ALENDRONATE SODIUM
     Indication: BONE DENSITY INCREASED
  3. HUMIRA [Suspect]
     Active Substance: ADALIMUMAB
     Route: 058
     Dates: start: 2017
  4. HUMIRA [Suspect]
     Active Substance: ADALIMUMAB
     Indication: CROHN^S DISEASE
     Route: 058
     Dates: start: 201612, end: 201706
  5. IMURAN [Concomitant]
     Active Substance: AZATHIOPRINE
     Indication: CROHN^S DISEASE

REACTIONS (3)
  - Small intestinal stenosis [Recovered/Resolved]
  - Crohn^s disease [Recovered/Resolved]
  - Abdominal adhesions [Recovered/Resolved]

NARRATIVE: CASE EVENT DATE: 2017
